FAERS Safety Report 9696726 (Version 2)
Quarter: 2013Q4

REPORT INFORMATION
  Report Type: Spontaneous
  Country: US (occurrence: US)
  Receive Date: 20131119
  Receipt Date: 20131119
  Transmission Date: 20140711
  Serious: No
  Sender: FDA-Public Use
  Company Number: US-GILEAD-2007-0014323

PATIENT
  Sex: Male
  Weight: 65.32 kg

DRUGS (8)
  1. LETAIRIS [Suspect]
     Indication: PULMONARY ARTERIAL HYPERTENSION
     Route: 048
  2. OXYGEN [Concomitant]
     Route: 055
  3. COREG [Concomitant]
     Route: 048
  4. LASIX [Concomitant]
     Route: 048
  5. COUMADIN [Concomitant]
     Route: 048
  6. PROPAFENONE [Concomitant]
     Route: 048
  7. ASPIRIN [Concomitant]
     Route: 048
  8. POTASSIUM CHLORIDE [Concomitant]
     Route: 048

REACTIONS (3)
  - Local swelling [Unknown]
  - Dyspnoea [Unknown]
  - Lung disorder [Unknown]
